FAERS Safety Report 21346237 (Version 2)
Quarter: 2022Q4

REPORT INFORMATION
  Report Type: Report from Study
  Country: US (occurrence: US)
  Receive Date: 20220917
  Receipt Date: 20221111
  Transmission Date: 20230113
  Serious: Yes (Hospitalization, Other)
  Sender: FDA-Public Use
  Company Number: US-NOVARTISPH-NVSC2022US207944

PATIENT
  Sex: Male

DRUGS (9)
  1. ENTRESTO [Suspect]
     Active Substance: SACUBITRIL\VALSARTAN
     Indication: Product used for unknown indication
     Dosage: UNK
     Route: 065
  2. ENTRESTO [Suspect]
     Active Substance: SACUBITRIL\VALSARTAN
     Dosage: 1 DOSAGE FORM, BID (24/26 MG, 1 TABLET BY MOUTH 2 TIMES DAILY) DISPENSED 180 TABLET AND RELEASED 3.
     Route: 065
     Dates: start: 20220330
  3. DAPAGLIFLOZIN [Concomitant]
     Active Substance: DAPAGLIFLOZIN
     Indication: Product used for unknown indication
     Dosage: 1 DOSAGE FORM (1 TABLET BY MOUTH EVERY MORNING)
     Route: 048
     Dates: start: 20220427
  4. CHOLECALCIFEROL [Concomitant]
     Active Substance: CHOLECALCIFEROL
     Indication: Product used for unknown indication
     Dosage: 25 UG, QD (( (VITAMIN D-3) 25 MCG (1000 UNITS). PATIENT TOOK 25 MCG BY MOUTH DAILY).
     Route: 048
  5. FUROSEMIDE [Concomitant]
     Active Substance: FUROSEMIDE
     Indication: Product used for unknown indication
     Dosage: 1 DOSAGE FORM, QD (TAKE 1 TABLET BY MOUTH DAILY) 3 REFILL
     Route: 065
     Dates: start: 20220330
  6. METOPROLOL SUCCINATE [Concomitant]
     Active Substance: METOPROLOL SUCCINATE
     Indication: Product used for unknown indication
     Dosage: 1 DOSAGE FORM, BID  25 MG 24 HR (TOPROL-XL) 25 MG 24 HR TABLET. PATIENT TOOK 1 TABLET BY MOUTH 2 TIM
     Route: 048
     Dates: start: 20220330
  7. POTASSIUM CHLORIDE [Concomitant]
     Active Substance: POTASSIUM CHLORIDE
     Indication: Product used for unknown indication
     Dosage: 2 DOSAGE FORM, QD ((KLOR-CON) 10 MEQ CR TABLET. PATIENT TOOK 2 TABLETS BY MOUTH DAILY)
     Route: 048
     Dates: start: 20220106, end: 20220518
  8. SERTRALINE [Concomitant]
     Active Substance: SERTRALINE HYDROCHLORIDE
     Indication: Product used for unknown indication
     Dosage: 1 DOSAGE FORM, QD , (ZOLOFT) 50 MG TABLET. PATIENT TOOK 1 TABLET BY MOUTH ONCE DAILY
     Route: 065
  9. CANAGLIFLOZIN [Concomitant]
     Active Substance: CANAGLIFLOZIN
     Indication: Product used for unknown indication
     Dosage: UNK, UNKNOWN
     Route: 065

REACTIONS (9)
  - Cardiac disorder [Unknown]
  - Hypokalaemia [Unknown]
  - Abdominal distension [Unknown]
  - Nausea [Unknown]
  - Rash papular [Unknown]
  - Pruritus [Unknown]
  - Obesity [Unknown]
  - Obstructive sleep apnoea syndrome [Unknown]
  - Abdominal discomfort [Unknown]
